FAERS Safety Report 16359890 (Version 2)
Quarter: 2019Q3

REPORT INFORMATION
  Report Type: Spontaneous
  Country: BR (occurrence: BR)
  Receive Date: 20190528
  Receipt Date: 20190805
  Transmission Date: 20191004
  Serious: Yes (Hospitalization, Other)
  Sender: FDA-Public Use
  Company Number: BR-AMGEN-BRASP2019083446

PATIENT
  Age: 67 Year
  Sex: Female

DRUGS (2)
  1. ENBREL [Suspect]
     Active Substance: ETANERCEPT
     Dosage: 25 MILLIGRAM, QWK (1 APPLICATION PER WEEK)
     Route: 065
     Dates: end: 201603
  2. ENBREL [Suspect]
     Active Substance: ETANERCEPT
     Indication: PRODUCT USED FOR UNKNOWN INDICATION
     Dosage: 50 MILLIGRAM, QWK (TWO AMPOULES OF 25 MG 1X /WEEK)
     Route: 065
     Dates: start: 2009

REACTIONS (4)
  - Psoriasis [Unknown]
  - Nephrolithiasis [Unknown]
  - Wound [Unknown]
  - Renal impairment [Unknown]
